FAERS Safety Report 7690956-6 (Version None)
Quarter: 2011Q3

REPORT INFORMATION
  Report Type: 
  Country: None (occurrence: None)
  Receive Date: 20110817
  Receipt Date: 20110817
  Transmission Date: 20111222
  Serious: Yes (Hospitalization)
  Sender: FDA-Public Use
  Company Number: None

PATIENT
  Sex: Male
  Weight: 65.4 kg

DRUGS (3)
  1. MERCAPTOPURINE [Suspect]
     Dosage: 900 MG
  2. METHOTREXATE [Suspect]
     Dosage: 25530 MG
     Dates: end: 20110609
  3. VINCRISTINE SULFATE [Suspect]
     Dosage: 6 MG
     Dates: end: 20110609

REACTIONS (2)
  - HYPERGLYCAEMIA [None]
  - TRANSAMINASES INCREASED [None]
